FAERS Safety Report 6149015-6 (Version None)
Quarter: 2009Q2

REPORT INFORMATION
  Report Type: 
  Country: None (occurrence: None)
  Receive Date: 20090407
  Receipt Date: 20090323
  Transmission Date: 20091009
  Serious: Yes (Other)
  Sender: FDA-Public Use
  Company Number: US-2009-0627

PATIENT
  Age: 17 Year
  Sex: Female

DRUGS (3)
  1. NAVELBINE [Suspect]
     Indication: RHABDOMYOSARCOMA
  2. OXALIPLATIN [Suspect]
     Indication: RHABDOMYOSARCOMA
  3. IRINOTECAN HCL [Suspect]
     Indication: RHABDOMYOSARCOMA

REACTIONS (6)
  - CLEFT LIP AND PALATE [None]
  - DRUG EXPOSURE DURING PREGNANCY [None]
  - METASTASES TO LUNG [None]
  - OESOPHAGEAL ATRESIA [None]
  - PREGNANCY [None]
  - TRACHEO-OESOPHAGEAL FISTULA [None]
